FAERS Safety Report 18683580 (Version 1)
Quarter: 2020Q4

REPORT INFORMATION
  Report Type: Spontaneous
  Country: NL (occurrence: NL)
  Receive Date: 20201230
  Receipt Date: 20201230
  Transmission Date: 20210114
  Serious: Yes (Hospitalization)
  Sender: FDA-Public Use
  Company Number: NL-TEVA-2020-NL-1863342

PATIENT
  Age: 65 Year
  Sex: Male
  Weight: 80 kg

DRUGS (3)
  1. QUETIAPINE TABLET FO  25MG / BRAND NAME NOT SPECIFIED [Suspect]
     Active Substance: QUETIAPINE
     Indication: SLEEP DISORDER
     Dosage: 50 MILLIGRAM DAILY; 1X 2 PCS
     Route: 065
     Dates: start: 202012, end: 20201205
  2. ESCITALOPRAM [Concomitant]
     Active Substance: ESCITALOPRAM OXALATE
     Dosage: 10 MG (MILLIGRAM), THERAPY START DATE: ASKED BUT UNKNOWN, THERAPY END DATE : ASKED BUT UNKNOWN
  3. OXAZEPAM TABLET 10MG / BRAND NAME NOT SPECIFIED [Concomitant]
     Active Substance: OXAZEPAM
     Dosage: 10 MG (MILLIGRAM), THERAPY START DATE: ASKED BUT UNKNOWN, THERAPY END DATE : ASKED BUT UNKNOWN

REACTIONS (1)
  - Cerebral infarction [Unknown]

NARRATIVE: CASE EVENT DATE: 20201204
